FAERS Safety Report 16776927 (Version 1)
Quarter: 2019Q3

REPORT INFORMATION
  Report Type: Report from Study
  Country: GT (occurrence: GT)
  Receive Date: 20190905
  Receipt Date: 20190905
  Transmission Date: 20191005
  Serious: Yes (Other)
  Sender: FDA-Public Use
  Company Number: PHHY2019GT203561

PATIENT
  Age: 60 Year
  Sex: Female

DRUGS (2)
  1. EXFORGE HCT [Suspect]
     Active Substance: AMLODIPINE BESYLATE\HYDROCHLOROTHIAZIDE\VALSARTAN
     Indication: PRODUCT USED FOR UNKNOWN INDICATION
     Dosage: (AMLODIPINE 10 MG, HYDROCHLOROTHIAZIDE 25 AND VALSARTAN 320 MG)
     Route: 065
     Dates: start: 201706
  2. JALRA M [Concomitant]
     Indication: PRODUCT USED FOR UNKNOWN INDICATION
     Dosage: (50/1000MG)
     Route: 065
     Dates: start: 201706

REACTIONS (4)
  - Speech disorder [Unknown]
  - Malaise [Unknown]
  - Ischaemia [Unknown]
  - Gait disturbance [Unknown]
